FAERS Safety Report 6434639-9 (Version None)
Quarter: 2009Q4

REPORT INFORMATION
  Report Type: 
  Country: None (occurrence: None)
  Receive Date: 20091110
  Receipt Date: 20091030
  Transmission Date: 20100525
  Serious: Yes (Death)
  Sender: FDA-Public Use
  Company Number: B0602567A

PATIENT
  Age: 54 Year
  Sex: Female

DRUGS (2)
  1. LAPATINIB [Suspect]
     Dosage: 1250MG PER DAY
     Route: 065
     Dates: start: 20080101
  2. CAPECITABINE [Suspect]
     Dosage: 2000MGM2 PER DAY
     Route: 065
     Dates: start: 20080101

REACTIONS (6)
  - ABDOMINAL PAIN [None]
  - DEATH [None]
  - DIARRHOEA [None]
  - DRUG TOXICITY [None]
  - DYSPEPSIA [None]
  - SEPTIC SHOCK [None]
